FAERS Safety Report 16480315 (Version 20)
Quarter: 2021Q4

REPORT INFORMATION
  Report Type: Spontaneous
  Country: US (occurrence: US)
  Receive Date: 20190626
  Receipt Date: 20211122
  Transmission Date: 20220303
  Serious: Yes (Hospitalization, Other)
  Sender: FDA-Public Use
  Company Number: US-PFIZER INC-2019271151

PATIENT
  Age: 64 Year
  Sex: Male
  Weight: 226 kg

DRUGS (34)
  1. LYRICA [Suspect]
     Active Substance: PREGABALIN
     Indication: Fibromyalgia
     Dosage: 100 MG, 1X/DAY (IN THE EVENING)
  2. LYRICA [Suspect]
     Active Substance: PREGABALIN
     Indication: Rheumatoid arthritis
     Dosage: 50 MG, 2X/DAY (50 MG IN THE MORNING AND 50 MG IN THE EVENING)
  3. LYRICA [Suspect]
     Active Substance: PREGABALIN
     Indication: Cervical radiculopathy
     Dosage: 100 MG, 2X/DAY
  4. LYRICA [Suspect]
     Active Substance: PREGABALIN
     Indication: Myofascial pain syndrome
     Dosage: 1 DF, WEEKLY (ONE PILL FOR ONE WEEK)
  5. LYRICA [Suspect]
     Active Substance: PREGABALIN
     Dosage: UNK, ALTERNATE DAY (ONE EVERY OTHER DAY)
  6. LYRICA [Suspect]
     Active Substance: PREGABALIN
     Dosage: 150 MG, 2X/DAY
     Route: 048
  7. LYRICA [Suspect]
     Active Substance: PREGABALIN
     Dosage: 200 MG, 3X/DAY
     Route: 048
  8. LYRICA [Suspect]
     Active Substance: PREGABALIN
     Dosage: 100 MG, 3X/DAY
  9. METHOTREXATE [Concomitant]
     Active Substance: METHOTREXATE
     Dosage: UNK (LONG-STANDING)
  10. ENBREL [Concomitant]
     Active Substance: ETANERCEPT
     Dosage: UNK (LONG-STANDING)
  11. HUMIRA [Concomitant]
     Active Substance: ADALIMUMAB
     Dosage: 40 MG, CYCLIC (EVERY 14 DAYS)
     Route: 058
     Dates: start: 201804
  12. CEFIXIME [Concomitant]
     Active Substance: CEFIXIME
     Dosage: UNK
  13. OXYCODONE [Concomitant]
     Active Substance: OXYCODONE
     Dosage: UNK (CHRONICALLY)
  14. GABAPENTIN [Concomitant]
     Active Substance: GABAPENTIN
     Dosage: UNK
  15. VIIBRYD [Concomitant]
     Active Substance: VILAZODONE HYDROCHLORIDE
     Dosage: 20 MG, DAILY (WITH BREAKFAST)
     Route: 048
  16. XANAX [Concomitant]
     Active Substance: ALPRAZOLAM
     Dosage: 0.5 MG, AS NEEDED (3 (THREE) TIMES A DAY AS NEEDED)
     Route: 048
  17. ASPIRIN [Concomitant]
     Active Substance: ASPIRIN
     Dosage: 81 MG, 1X/DAY (EVERY MORNING)
  18. LIPITOR [Concomitant]
     Active Substance: ATORVASTATIN CALCIUM
     Dosage: 20 MG, 1X/DAY (NIGHTLY)
     Route: 048
  19. LIORESAL [Concomitant]
     Active Substance: BACLOFEN
     Dosage: 10 MG, AS NEEDED
     Route: 048
  20. VITAMIN D3 [Concomitant]
     Active Substance: CHOLECALCIFEROL
     Dosage: 5000 IU, ALTERNATE DAY
     Route: 048
  21. TRULICITY [Concomitant]
     Active Substance: DULAGLUTIDE
     Dosage: UNK, WEEKLY
     Route: 058
  22. FOLVITE [FOLIC ACID] [Concomitant]
     Dosage: 1000 UG, 1X/DAY (EVERY MORNING)
     Route: 048
  23. BASAGLAR [Concomitant]
     Active Substance: INSULIN GLARGINE
     Dosage: 16 IU, 1X/DAY (EVERY EVENING)
     Route: 058
  24. HUMALOG [Concomitant]
     Active Substance: INSULIN LISPRO
     Dosage: 7-10 UNITS, 3X/DAY (BEFORE MEALS PLUS SLIDING SCALE)
     Route: 058
  25. GLUCOPHAGE XR [Concomitant]
     Active Substance: METFORMIN HYDROCHLORIDE
     Dosage: UNK
  26. TREXALL [Concomitant]
     Active Substance: METHOTREXATE SODIUM
     Dosage: 12.5 MG, WEEKLY
     Route: 048
  27. MULTIVITAMINS WITH LUTEIN [Concomitant]
     Dosage: UNK
     Route: 048
  28. PREDNISOLONE [Concomitant]
     Active Substance: PREDNISOLONE
     Dosage: 20 MG, DAILY (FOR 5 DAYS)
     Route: 048
  29. PREDNISOLONE [Concomitant]
     Active Substance: PREDNISOLONE
     Dosage: 10 MG, DAILY (FOR 5 DAYS)
     Route: 048
  30. PREDNISOLONE [Concomitant]
     Active Substance: PREDNISOLONE
     Dosage: 20 MG, DAILY (FOR 5 DAYS)
     Route: 048
  31. PREDNISOLONE [Concomitant]
     Active Substance: PREDNISOLONE
     Dosage: 10 MG, DAILY (ONE-HALF TABLET, FOR 5 DAYS)
     Route: 048
  32. CIALIS [Concomitant]
     Active Substance: TADALAFIL
     Indication: Erectile dysfunction
     Dosage: 5 MG, AS NEEDED (DAILY AS NEEDED)
     Route: 048
  33. ZANAFLEX [Concomitant]
     Active Substance: TIZANIDINE HYDROCHLORIDE
     Indication: Muscle spasms
     Dosage: 4 MG, AS NEEDED (3 (THREE) TIMES A DAY AS NEEDED)
     Route: 048
  34. ZOFRAN [Concomitant]
     Active Substance: ONDANSETRON HYDROCHLORIDE
     Dosage: 4 MG, AS NEEDED (EVERY 6 (SIX) HOURS AS NEEDED)
     Route: 048

REACTIONS (41)
  - Pain [Not Recovered/Not Resolved]
  - Withdrawal syndrome [Not Recovered/Not Resolved]
  - Urinary tract infection [Unknown]
  - Drug dependence [Unknown]
  - Suicidal behaviour [Unknown]
  - Presyncope [Unknown]
  - Arthralgia [Recovering/Resolving]
  - Joint dislocation [Unknown]
  - Arthritis [Unknown]
  - Rotator cuff syndrome [Unknown]
  - Abdominal mass [Unknown]
  - Drug ineffective [Unknown]
  - Intentional dose omission [Unknown]
  - Intentional product use issue [Unknown]
  - Product administration error [Unknown]
  - Feeling abnormal [Unknown]
  - Headache [Unknown]
  - Malaise [Unknown]
  - Hyperhidrosis [Unknown]
  - Nausea [Unknown]
  - Insomnia [Unknown]
  - Chills [Unknown]
  - Constipation [Unknown]
  - Sensitivity to weather change [Unknown]
  - Vomiting [Unknown]
  - Abdominal pain upper [Unknown]
  - Condition aggravated [Unknown]
  - Neck pain [Unknown]
  - Back pain [Unknown]
  - Visual impairment [Unknown]
  - Crying [Unknown]
  - Myalgia [Recovering/Resolving]
  - Spinal osteoarthritis [Unknown]
  - Muscle atrophy [Unknown]
  - Myofascial pain syndrome [Recovering/Resolving]
  - Crepitations [Unknown]
  - Muscle contracture [Unknown]
  - Sleep disorder [Unknown]
  - Immune system disorder [Unknown]
  - Depressed mood [Unknown]
  - Stress [Unknown]
